FAERS Safety Report 7471311-0 (Version None)
Quarter: 2011Q2

REPORT INFORMATION
  Report Type: 
  Country: None (occurrence: None)
  Receive Date: 20110510
  Receipt Date: 20110504
  Transmission Date: 20111010
  Serious: Yes (Other)
  Sender: FDA-Public Use
  Company Number: US-ABBOTT-11P-163-0723556-00

PATIENT

DRUGS (2)
  1. SYNTHROID [Suspect]
     Indication: PRODUCT USED FOR UNKNOWN INDICATION
  2. LANTUS [Suspect]
     Indication: PRODUCT USED FOR UNKNOWN INDICATION
     Dosage: 100 IU/ML
     Dates: start: 20110101

REACTIONS (5)
  - ANAPHYLACTIC REACTION [None]
  - VOMITING [None]
  - RASH GENERALISED [None]
  - NEUROPATHY PERIPHERAL [None]
  - NAUSEA [None]
